FAERS Safety Report 5024797-5 (Version None)
Quarter: 2006Q2

REPORT INFORMATION
  Report Type: 
  Country: None (occurrence: None)
  Receive Date: 20060426
  Receipt Date: 20060214
  Transmission Date: 20061013
  Serious: Yes (Other)
  Sender: FDA-Public Use
  Company Number: 2006023158

PATIENT
  Age: 59 Year
  Sex: Male
  Weight: 70.3075 kg

DRUGS (7)
  1. LYRICA [Suspect]
     Indication: PAIN
     Dosage: 150 MG (50 MG, 3 IN 1 D)
  2. ZOLOFT [Concomitant]
  3. DIOVAN [Concomitant]
  4. MOBIC [Concomitant]
  5. PROTONIX [Concomitant]
  6. TOPROL-XL [Concomitant]
  7. NITROGLYCERIN [Concomitant]

REACTIONS (1)
  - BARBITURATES POSITIVE [None]
